FAERS Safety Report 4574491-X (Version None)
Quarter: 2005Q1

REPORT INFORMATION
  Report Type: 
  Country: None (occurrence: None)
  Receive Date: 20050208
  Receipt Date: 20020909
  Transmission Date: 20050727
  Serious: Yes (Hospitalization)
  Sender: FDA-Public Use
  Company Number: US-GLAXOSMITHKLINE-A0380244A

PATIENT
  Age: 41 Year
  Sex: Female
  Weight: 81.8 kg

DRUGS (7)
  1. PAXIL [Suspect]
     Route: 048
  2. DARVOCET [Suspect]
  3. VICODIN [Suspect]
  4. WELLBUTRIN [Concomitant]
  5. TRAZODONE [Concomitant]
  6. SYNTHROID [Concomitant]
  7. PREMARIN [Concomitant]

REACTIONS (13)
  - CRYING [None]
  - DRUG WITHDRAWAL SYNDROME [None]
  - FATIGUE [None]
  - INSOMNIA [None]
  - INTENTIONAL MISUSE [None]
  - IRRITABILITY [None]
  - MOOD SWINGS [None]
  - NAUSEA [None]
  - NERVOUSNESS [None]
  - PARAESTHESIA [None]
  - SENSORY DISTURBANCE [None]
  - SUICIDAL IDEATION [None]
  - VOMITING [None]
